FAERS Safety Report 6384303-X (Version None)
Quarter: 2009Q4

REPORT INFORMATION
  Report Type: 
  Country: None (occurrence: None)
  Receive Date: 20091001
  Receipt Date: 20090924
  Transmission Date: 20100525
  Serious: Yes (Hospitalization)
  Sender: FDA-Public Use
  Company Number: US-ELI_LILLY_AND_COMPANY-US200909003527

PATIENT
  Age: 60 Year
  Sex: Female
  Weight: 69.252 kg

DRUGS (4)
  1. PEMETREXED [Suspect]
     Indication: UTERINE CANCER
     Dosage: 96 MG, OTHER
     Route: 042
     Dates: start: 20090909
  2. DOCETAXEL [Suspect]
     Indication: UTERINE CANCER
     Dosage: 96 MG, OTHER
     Route: 042
     Dates: start: 20090909
  3. FOLIC ACID [Concomitant]
     Dosage: 800 UG, DAILY (1/D)
     Dates: start: 20090812
  4. VITAMIN B-12 [Concomitant]
     Dosage: 1000 UG, OTHER
     Route: 030
     Dates: start: 20090812

REACTIONS (5)
  - DEHYDRATION [None]
  - DIARRHOEA [None]
  - NAUSEA [None]
  - PYREXIA [None]
  - VOMITING [None]
